FAERS Safety Report 21933414 (Version 1)
Quarter: 2023Q1

REPORT INFORMATION
  Report Type: Spontaneous
  Country: AR (occurrence: AR)
  Receive Date: 20230131
  Receipt Date: 20230131
  Transmission Date: 20230417
  Serious: Yes (Hospitalization, Other)
  Sender: FDA-Public Use
  Company Number: AR-NOVOPROD-1016400

PATIENT
  Age: 49 Year
  Sex: Female
  Weight: 88 kg

DRUGS (1)
  1. LIRAGLUTIDE [Suspect]
     Active Substance: LIRAGLUTIDE
     Indication: Obesity
     Dosage: DOSE: 0.6 (UNSPECIFIED UNITS)

REACTIONS (1)
  - Insulinoma [Unknown]

NARRATIVE: CASE EVENT DATE: 20230120
